FAERS Safety Report 9837816 (Version 2)
Quarter: 2014Q3

REPORT INFORMATION
  Report Type: Spontaneous
  Country: US (occurrence: US)
  Receive Date: 20140123
  Receipt Date: 20140730
  Transmission Date: 20150326
  Serious: Yes (Hospitalization, Other)
  Sender: FDA-Public Use
  Company Number: US-009507513-1401USA010055

PATIENT
  Sex: Female

DRUGS (1)
  1. NUVARING [Suspect]
     Active Substance: ETHINYL ESTRADIOL\ETONOGESTREL
     Indication: MENORRHAGIA
     Dosage: UNK
     Route: 067
     Dates: start: 2010, end: 20120709

REACTIONS (8)
  - Chest pain [Unknown]
  - Migraine [Unknown]
  - Antiphospholipid antibodies positive [Unknown]
  - Deep vein thrombosis [Unknown]
  - Cardiac murmur [Unknown]
  - Hypertension [Unknown]
  - Immune thrombocytopenic purpura [Unknown]
  - Off label use [Unknown]

NARRATIVE: CASE EVENT DATE: 20120706
